FAERS Safety Report 17811673 (Version 3)
Quarter: 2020Q2

REPORT INFORMATION
  Report Type: Report from Study
  Country: None (occurrence: US)
  Receive Date: 20200521
  Receipt Date: 20200610
  Transmission Date: 20200714
  Serious: No
  Sender: FDA-Public Use
  Company Number: US-BIOVITRUM-2020US2665

PATIENT
  Age: 17 Year
  Sex: Female

DRUGS (1)
  1. KINERET [Suspect]
     Active Substance: ANAKINRA
     Indication: JUVENILE IDIOPATHIC ARTHRITIS
     Route: 058
     Dates: start: 20200512

REACTIONS (9)
  - Skin exfoliation [Unknown]
  - Off label use [Unknown]
  - Mass [Unknown]
  - Pruritus [Unknown]
  - Injection site reaction [Unknown]
  - Erythema [Unknown]
  - Hypersensitivity [Unknown]
  - Eczema [Unknown]
  - Urticaria [Unknown]

NARRATIVE: CASE EVENT DATE: 20200512
